FAERS Safety Report 19430305 (Version 1)
Quarter: 2021Q2

REPORT INFORMATION
  Report Type: Spontaneous
  Country: US (occurrence: US)
  Receive Date: 20210618
  Receipt Date: 20210618
  Transmission Date: 20210717
  Serious: No
  Sender: FDA-Public Use
  Company Number: US-ROCHE-2710333

PATIENT
  Sex: Female
  Weight: 68.1 kg

DRUGS (4)
  1. ACTEMRA [Suspect]
     Active Substance: TOCILIZUMAB
     Indication: GIANT CELL ARTERITIS
     Route: 058
     Dates: start: 202008
  2. ACTEMRA [Suspect]
     Active Substance: TOCILIZUMAB
  3. PREDNISONE. [Concomitant]
     Active Substance: PREDNISONE
  4. ASA [Concomitant]
     Active Substance: ASPIRIN

REACTIONS (1)
  - Infection [Recovered/Resolved]
